FAERS Safety Report 9230289 (Version 3)
Quarter: 2014Q1

REPORT INFORMATION
  Report Type: Spontaneous
  Country: BR (occurrence: BR)
  Receive Date: 20130415
  Receipt Date: 20140101
  Transmission Date: 20141002
  Serious: Yes (Hospitalization, Other)
  Sender: FDA-Public Use
  Company Number: PHHY2013BR035181

PATIENT
  Age: 23 Year
  Sex: Female
  Weight: 52 kg

DRUGS (1)
  1. TRILEPTAL [Suspect]
     Indication: PETIT MAL EPILEPSY
     Dosage: 2 DF, BID
     Route: 048

REACTIONS (12)
  - Pneumonia [Recovered/Resolved]
  - Infection [Recovered/Resolved]
  - Hodgkin^s disease nodular sclerosis stage III [Not Recovered/Not Resolved]
  - Necrosis [Unknown]
  - Lymphoma [Unknown]
  - Tumour compression [Recovered/Resolved]
  - Lymphadenopathy [Not Recovered/Not Resolved]
  - Aphagia [Recovered/Resolved]
  - Pain [Recovered/Resolved]
  - Vomiting [Recovering/Resolving]
  - Petit mal epilepsy [Not Recovered/Not Resolved]
  - Drug ineffective [Unknown]
